FAERS Safety Report 11914342 (Version 1)
Quarter: 2016Q1

REPORT INFORMATION
  Report Type: Report from Study
  Country: AU (occurrence: AU)
  Receive Date: 20160113
  Receipt Date: 20160113
  Transmission Date: 20160526
  Serious: Yes (Hospitalization)
  Sender: FDA-Public Use
  Company Number: AU-ELI_LILLY_AND_COMPANY-AU201601002031

PATIENT
  Age: 70 Year
  Sex: Female
  Weight: 61.3 kg

DRUGS (18)
  1. FUROSEMIDE. [Concomitant]
     Active Substance: FUROSEMIDE
     Indication: PULMONARY HYPERTENSION
     Dosage: 40 MG, QD
     Route: 048
     Dates: start: 2015
  2. FOLIC ACID. [Concomitant]
     Active Substance: FOLIC ACID
     Indication: SUPPLEMENTATION THERAPY
     Dosage: 500 UG, QD
     Route: 048
     Dates: start: 20151130
  3. DEXAMETHASONE. [Concomitant]
     Active Substance: DEXAMETHASONE
     Indication: PROPHYLAXIS
     Dosage: 20 MG, BID (ON DAY 1 OF EACH CHEMOTHERAPY CYCLE)
     Route: 048
     Dates: start: 20150723, end: 20151027
  4. CHOLECALCIFEROL [Concomitant]
     Active Substance: CHOLECALCIFEROL
     Indication: HYPOVITAMINOSIS
     Dosage: 1000 MG, QD
     Route: 048
     Dates: start: 2015
  5. MAXOLON [Concomitant]
     Active Substance: METOCLOPRAMIDE HYDROCHLORIDE
     Indication: VOMITING
  6. COLOXYL                            /00061602/ [Concomitant]
     Indication: CONSTIPATION
     Dosage: UNK (2 IN 1 DAY)
     Route: 048
     Dates: start: 201507
  7. PANTOPRAZOLE [Concomitant]
     Active Substance: PANTOPRAZOLE SODIUM
     Indication: REFLUX GASTRITIS
     Dosage: 20 MG, QD
     Route: 048
     Dates: start: 2000
  8. CARBOPLATIN. [Suspect]
     Active Substance: CARBOPLATIN
     Indication: NON-SMALL CELL LUNG CANCER METASTATIC
     Dosage: UNK, CYCLICAL
     Route: 042
     Dates: start: 20150723
  9. PEMETREXED [Suspect]
     Active Substance: PEMETREXED
     Indication: NON-SMALL CELL LUNG CANCER METASTATIC
     Dosage: 820 MG, CYCLICAL (ON DAY 1 OF 21 DAY CYCLE)
     Route: 042
     Dates: start: 20151130, end: 20151130
  10. DEXAMETHASONE. [Concomitant]
     Active Substance: DEXAMETHASONE
     Indication: PREMEDICATION
     Dosage: 4 MG, BID (ON DAY OF PEMETREXED DOSING)
     Route: 048
     Dates: start: 20151130
  11. NIFEDIPINE. [Concomitant]
     Active Substance: NIFEDIPINE
     Indication: SCLERODERMA
     Dosage: 60 MG, QD
     Route: 048
     Dates: start: 2000
  12. VITAMIN B12 [Concomitant]
     Active Substance: CYANOCOBALAMIN
     Indication: SUPPLEMENTATION THERAPY
     Dosage: 1000 MG, OTHER (GIVEN EVERY 12 WEEKS DURING PEMETREXED THERAPY)
     Route: 030
     Dates: start: 20151030
  13. MAXOLON [Concomitant]
     Active Substance: METOCLOPRAMIDE HYDROCHLORIDE
     Indication: NAUSEA
     Dosage: 10 MG, PRN
     Route: 048
     Dates: start: 201507
  14. OXYCONTIN [Concomitant]
     Active Substance: OXYCODONE HYDROCHLORIDE
     Indication: PAIN
     Dosage: 40 MG, UNK
     Route: 048
     Dates: start: 201507
  15. OXYCONTIN [Concomitant]
     Active Substance: OXYCODONE HYDROCHLORIDE
     Indication: OSTEOLYSIS
  16. MACITENTAN [Concomitant]
     Active Substance: MACITENTAN
     Indication: PULMONARY HYPERTENSION
     Dosage: 10 MG, QD
     Route: 048
     Dates: start: 2015
  17. PACLITAXEL. [Suspect]
     Active Substance: PACLITAXEL
     Indication: NON-SMALL CELL LUNG CANCER METASTATIC
     Dosage: 200 MG/M2, CYCLICAL
     Route: 042
     Dates: start: 20150723
  18. NAPROSYN [Concomitant]
     Active Substance: NAPROXEN
     Indication: REFLUX GASTRITIS
     Dosage: 1000 MG, QD
     Route: 048
     Dates: start: 2000

REACTIONS (1)
  - Pulmonary haemorrhage [Unknown]

NARRATIVE: CASE EVENT DATE: 20151212
